FAERS Safety Report 6035477-1 (Version None)
Quarter: 2009Q1

REPORT INFORMATION
  Report Type: 
  Country: None (occurrence: None)
  Receive Date: 20090112
  Receipt Date: 20090112
  Transmission Date: 20090719
  Serious: No
  Sender: FDA-Public Use
  Company Number: None

PATIENT
  Age: 50 Year
  Sex: Female
  Weight: 107.5025 kg

DRUGS (3)
  1. METHYLPREDNISOLONE 4MG TAB [Suspect]
     Indication: JAW DISORDER
     Dosage: 2-BRKFST; 1 LUNCH; 1 DIN: 2 BT DENTAL
     Route: 004
     Dates: start: 20090107, end: 20090108
  2. METHYLPREDNISOLONE 4MG TAB [Suspect]
     Indication: SWELLING
     Dosage: 2-BRKFST; 1 LUNCH; 1 DIN: 2 BT DENTAL
     Route: 004
     Dates: start: 20090107, end: 20090108
  3. METHYLPREDNISOLONE 4MG TAB [Suspect]
     Indication: TOOTH DISORDER
     Dosage: 2-BRKFST; 1 LUNCH; 1 DIN: 2 BT DENTAL
     Route: 004
     Dates: start: 20090107, end: 20090108

REACTIONS (8)
  - BACK PAIN [None]
  - DYSPEPSIA [None]
  - FEELING ABNORMAL [None]
  - INSOMNIA [None]
  - LOCAL SWELLING [None]
  - MIDDLE INSOMNIA [None]
  - NAUSEA [None]
  - NERVOUSNESS [None]
